FAERS Safety Report 13134166 (Version 3)
Quarter: 2017Q4

REPORT INFORMATION
  Report Type: Report from Study
  Country: IT (occurrence: IT)
  Receive Date: 20170120
  Receipt Date: 20171220
  Transmission Date: 20180320
  Serious: Yes (Hospitalization, Other)
  Sender: FDA-Public Use
  Company Number: IT-ROCHE-1880201

PATIENT
  Age: 57 Year
  Sex: Female

DRUGS (5)
  1. COTELLIC [Suspect]
     Active Substance: COBIMETINIB
     Dosage: DOSE + UNIT : STANDARD
     Route: 048
     Dates: start: 201601
  2. MEDROL [Concomitant]
     Active Substance: METHYLPREDNISOLONE
     Indication: RHEUMATOID ARTHRITIS
  3. ZELBORAF [Suspect]
     Active Substance: VEMURAFENIB
     Dosage: DOSE + UNIT : STANDARD
     Route: 048
     Dates: start: 201601
  4. ZELBORAF [Suspect]
     Active Substance: VEMURAFENIB
     Indication: METASTATIC MALIGNANT MELANOMA
     Dosage: 240 MG BLISTER PACK OF 56 TABLETS
     Route: 048
     Dates: start: 20160208, end: 20161222
  5. COTELLIC [Suspect]
     Active Substance: COBIMETINIB
     Indication: METASTATIC MALIGNANT MELANOMA
     Dosage: 20 MG BLISTER PACK OF 63
     Route: 048
     Dates: start: 20161128, end: 20161222

REACTIONS (9)
  - Pyrexia [Unknown]
  - Asthenia [Recovered/Resolved]
  - Photosensitivity reaction [Not Recovered/Not Resolved]
  - Decreased appetite [Unknown]
  - Body temperature increased [Recovered/Resolved]
  - Asthenia [Unknown]
  - Nausea [Recovered/Resolved]
  - Mucosal inflammation [Unknown]
  - Diarrhoea [Recovered/Resolved]

NARRATIVE: CASE EVENT DATE: 20161209
